FAERS Safety Report 13390839 (Version 1)
Quarter: 2017Q1

REPORT INFORMATION
  Report Type: Spontaneous
  Country: US (occurrence: US)
  Receive Date: 20170331
  Receipt Date: 20170331
  Transmission Date: 20170429
  Serious: No
  Sender: FDA-Public Use
  Company Number: None

PATIENT

DRUGS (1)
  1. WARFARIN SODIUM  WARFARIN [Suspect]
     Active Substance: WARFARIN SODIUM

REACTIONS (3)
  - Drug administration error [None]
  - Wrong technique in product usage process [None]
  - International normalised ratio increased [None]
